FAERS Safety Report 4771186-4 (Version None)
Quarter: 2005Q3

REPORT INFORMATION
  Report Type: 
  Country: None (occurrence: None)
  Receive Date: 20050914
  Receipt Date: 20050829
  Transmission Date: 20060218
  Serious: Yes (Other)
  Sender: FDA-Public Use
  Company Number: USA0508106687

PATIENT
  Age: 53 Year
  Sex: Female
  Weight: 75 kg

DRUGS (6)
  1. STRATTERA [Suspect]
     Indication: ATTENTION DEFICIT/HYPERACTIVITY DISORDER
     Dosage: 180 MG DAY
  2. CYMBALTA [Concomitant]
     Indication: DEPRESSION
     Dosage: 120 MG DAY
  3. TOPAMAX [Concomitant]
  4. GEODON [Concomitant]
  5. PROVIGIL [Concomitant]
  6. RITALN (METHYLPHENIDATE HYDROCHLORIDE) [Concomitant]

REACTIONS (5)
  - DEPRESSION [None]
  - INTENTIONAL SELF-INJURY [None]
  - LACERATION [None]
  - SUICIDAL IDEATION [None]
  - SUICIDE ATTEMPT [None]
